FAERS Safety Report 17215287 (Version 1)
Quarter: 2019Q4

REPORT INFORMATION
  Report Type: Report from Study
  Country: US (occurrence: US)
  Receive Date: 20191230
  Receipt Date: 20191230
  Transmission Date: 20200122
  Serious: No
  Sender: FDA-Public Use
  Company Number: US-CLOVIS ONCOLOGY-CLO-2019-002587

PATIENT
  Age: 49 Year
  Sex: Female

DRUGS (1)
  1. RUBRACA [Suspect]
     Active Substance: RUCAPARIB CAMSYLATE
     Indication: OVARIAN CANCER
     Dosage: 600 MG, BID
     Route: 048
     Dates: start: 20191211

REACTIONS (4)
  - Blood potassium increased [Unknown]
  - Nausea [Unknown]
  - Asthenia [Unknown]
  - Alopecia [Unknown]

NARRATIVE: CASE EVENT DATE: 201912
